FAERS Safety Report 23377539 (Version 1)
Quarter: 2024Q1

REPORT INFORMATION
  Report Type: Spontaneous
  Country: DE (occurrence: DE)
  Receive Date: 20240108
  Receipt Date: 20240108
  Transmission Date: 20240410
  Serious: Yes (Hospitalization, Other)
  Sender: FDA-Public Use
  Company Number: None

PATIENT
  Age: 36 Year
  Sex: Female

DRUGS (5)
  1. NAFARELIN ACETATE [Suspect]
     Active Substance: NAFARELIN ACETATE
     Indication: Assisted reproductive technology
     Dosage: 0.4 MG, 1X/DAY
     Dates: start: 20231028, end: 20231122
  2. NAFARELIN ACETATE [Suspect]
     Active Substance: NAFARELIN ACETATE
     Dosage: 0.2 MG, 1X/DAY
     Dates: start: 20231123, end: 20231123
  3. GONADOTROPHIN, CHORIONIC [Suspect]
     Active Substance: GONADOTROPHIN, CHORIONIC
     Indication: Assisted reproductive technology
     Dosage: 1000 IU
     Dates: start: 20231124, end: 20231124
  4. FOLLITROPIN\LUTROPIN ALFA [Suspect]
     Active Substance: FOLLITROPIN\LUTROPIN ALFA
     Indication: Assisted reproductive technology
     Dosage: 300 IU, 1X/DAY
     Dates: start: 20231112, end: 20231122
  5. PROGESTERONE [Suspect]
     Active Substance: PROGESTERONE
     Indication: Assisted reproductive technology
     Dosage: 600 MG, 1X/DAY
     Dates: start: 20231126

REACTIONS (6)
  - Intra-abdominal haemorrhage [Recovered/Resolved]
  - Peritoneal haematoma [Recovered/Resolved]
  - Ovarian cyst ruptured [Recovered/Resolved]
  - Groin pain [Recovered/Resolved]
  - Swelling [Recovered/Resolved]
  - Off label use [Unknown]

NARRATIVE: CASE EVENT DATE: 20231028
